FAERS Safety Report 20168458 (Version 2)
Quarter: 2023Q2

REPORT INFORMATION
  Report Type: Other
  Country: TR (occurrence: None)
  Receive Date: 20211210
  Receipt Date: 20230526
  Transmission Date: 20230722
  Serious: Yes (Other)
  Sender: FDA-Public Use
  Company Number: TR-ROCHE-2972938

PATIENT
  Age: 63 Year
  Sex: Female

DRUGS (3)
  1. CAPECITABINE [Suspect]
     Active Substance: CAPECITABINE
     Indication: Gallbladder cancer
     Route: 048
  2. CAPECITABINE [Suspect]
     Active Substance: CAPECITABINE
     Indication: Signet-ring cell carcinoma
  3. GEMCITABINE [Suspect]
     Active Substance: GEMCITABINE
     Indication: Gallbladder cancer
     Route: 065

REACTIONS (3)
  - Lung cancer metastatic [Unknown]
  - Disease progression [Unknown]
  - Off label use [Unknown]
